FAERS Safety Report 17842964 (Version 4)
Quarter: 2021Q1

REPORT INFORMATION
  Report Type: Spontaneous
  Country: JP (occurrence: JP)
  Receive Date: 20200530
  Receipt Date: 20210204
  Transmission Date: 20210419
  Serious: Yes (Death, Other)
  Sender: FDA-Public Use
  Company Number: JP-AUROBINDO-AUR-APL-2020-026367

PATIENT
  Age: 69 Year
  Sex: Male

DRUGS (3)
  1. FOLOTYN [Suspect]
     Active Substance: PRALATREXATE
     Dosage: 30 MILLIGRAM/SQ. METER
     Route: 042
     Dates: end: 20190924
  2. LEUCOVORIN. [Concomitant]
     Active Substance: LEUCOVORIN
     Indication: PRODUCT USED FOR UNKNOWN INDICATION
     Dosage: UNK
     Route: 005
  3. FOLOTYN [Suspect]
     Active Substance: PRALATREXATE
     Indication: CUTANEOUS T-CELL LYMPHOMA
     Dosage: 30 MILLIGRAM/SQ. METER
     Route: 042
     Dates: start: 20190510

REACTIONS (4)
  - Stomatitis [Unknown]
  - Neutrophil count decreased [Recovered/Resolved]
  - Acute kidney injury [Fatal]
  - Blood lactate dehydrogenase decreased [Unknown]

NARRATIVE: CASE EVENT DATE: 20190513
